FAERS Safety Report 4440039-3 (Version None)
Quarter: 2004Q3

REPORT INFORMATION
  Report Type: 
  Country: None (occurrence: None)
  Receive Date: 20040902
  Receipt Date: 20040630
  Transmission Date: 20050211
  Serious: Yes (Hospitalization)
  Sender: FDA-Public Use
  Company Number: DE-BRISTOL-MYERS SQUIBB COMPANY-12629952

PATIENT
  Age: 58 Year
  Sex: Female
  Weight: 58 kg

DRUGS (2)
  1. KARVEZIDE TABS 300MG/12.5MG [Suspect]
     Indication: HYPERTENSION
     Route: 048
     Dates: start: 19980101, end: 20040501
  2. KARVEA TABS [Suspect]
     Indication: HYPERTENSION
     Route: 048
     Dates: start: 20040501, end: 20040601

REACTIONS (5)
  - DISTURBANCE IN ATTENTION [None]
  - DIZZINESS [None]
  - HYPONATRAEMIA [None]
  - SPEECH DISORDER [None]
  - VISUAL DISTURBANCE [None]
